FAERS Safety Report 14891704 (Version 1)
Quarter: 2018Q2

REPORT INFORMATION
  Report Type: Spontaneous
  Country: US (occurrence: US)
  Receive Date: 20180514
  Receipt Date: 20180514
  Transmission Date: 20180711
  Serious: No
  Sender: FDA-Public Use
  Company Number: US-UNITED THERAPEUTICS-UNT-2018-000013

PATIENT
  Sex: Female

DRUGS (2)
  1. TYVASO [Suspect]
     Active Substance: TREPROSTINIL
     Indication: PULMONARY ARTERIAL HYPERTENSION
     Dosage: 72 ?G, QID
     Dates: start: 20161215
  2. UPTRAVI [Suspect]
     Active Substance: SELEXIPAG
     Indication: PRODUCT USED FOR UNKNOWN INDICATION
     Dosage: UNK
     Route: 065
     Dates: start: 20171215

REACTIONS (12)
  - Back pain [Unknown]
  - Exercise tolerance decreased [Unknown]
  - Headache [Unknown]
  - Diarrhoea [Unknown]
  - Pain in jaw [Unknown]
  - Off label use [Unknown]
  - Dizziness [Unknown]
  - Dyspnoea [Unknown]
  - Localised oedema [Unknown]
  - Oedema peripheral [Unknown]
  - Nausea [Unknown]
  - Arthralgia [Unknown]

NARRATIVE: CASE EVENT DATE: 20161215
